FAERS Safety Report 21796564 (Version 1)
Quarter: 2022Q4

REPORT INFORMATION
  Report Type: Spontaneous
  Country: AU (occurrence: AU)
  Receive Date: 20221229
  Receipt Date: 20221229
  Transmission Date: 20230112
  Serious: Yes (Other)
  Sender: FDA-Public Use
  Company Number: AU-SUN PHARMACEUTICAL INDUSTRIES LTD-2022RR-370833

PATIENT
  Age: 72 Year
  Sex: Female

DRUGS (4)
  1. ACETAMINOPHEN [Suspect]
     Active Substance: ACETAMINOPHEN
     Indication: Oral pain
     Dosage: UNK
     Route: 048
  2. TRIMETHOPRIM [Interacting]
     Active Substance: TRIMETHOPRIM
     Indication: Urinary tract infection
     Dosage: 300 MILLIGRAM NOCTE
     Route: 065
  3. METHOTREXATE [Interacting]
     Active Substance: METHOTREXATE
     Indication: Osteoarthritis
     Dosage: 10 MILLIGRAM, WEEKLY
     Route: 065
  4. FOLIC ACID [Suspect]
     Active Substance: FOLIC ACID
     Indication: Osteoarthritis
     Dosage: 5 MILLIGRAM, DAILY
     Route: 065

REACTIONS (4)
  - Drug ineffective [Unknown]
  - Drug interaction [Unknown]
  - Myelosuppression [Unknown]
  - Toxicity to various agents [Unknown]
